FAERS Safety Report 19983793 (Version 3)
Quarter: 2021Q4

REPORT INFORMATION
  Report Type: Spontaneous
  Country: ES (occurrence: ES)
  Receive Date: 20211021
  Receipt Date: 20211105
  Transmission Date: 20220303
  Serious: Yes (Life-Threatening, Hospitalization, Other)
  Sender: FDA-Public Use
  Company Number: ES-PFIZER INC-2020499362

PATIENT
  Age: 66 Year
  Sex: Female

DRUGS (14)
  1. BEVACIZUMAB [Suspect]
     Active Substance: BEVACIZUMAB
     Indication: Fallopian tube cancer
     Dosage: UNK
  2. BEVACIZUMAB [Suspect]
     Active Substance: BEVACIZUMAB
     Indication: Ovarian cancer
     Dosage: UNK (STRENGTH: 25MG/ML)
     Route: 065
  3. BEVACIZUMAB [Suspect]
     Active Substance: BEVACIZUMAB
     Dosage: UNK
  4. BEVACIZUMAB [Suspect]
     Active Substance: BEVACIZUMAB
     Dosage: UNK UNK, CYCLE
     Route: 065
  5. PACLITAXEL [Suspect]
     Active Substance: PACLITAXEL
     Indication: Fallopian tube cancer
     Dosage: UNK
  6. PACLITAXEL [Suspect]
     Active Substance: PACLITAXEL
     Indication: Ovarian cancer
     Dosage: 5 MILLILITER, CYCLE
     Route: 065
  7. GADOTERIDOL [Suspect]
     Active Substance: GADOTERIDOL
     Indication: Ovarian cancer
     Dosage: UNK
     Route: 065
  8. GADOTERIDOL [Suspect]
     Active Substance: GADOTERIDOL
     Indication: Fallopian tube cancer
     Dosage: UNK
     Route: 065
  9. PACLITAXEL [Suspect]
     Active Substance: PACLITAXEL
     Indication: Fallopian tube cancer
     Dosage: UNK
  10. CARBOPLATIN [Concomitant]
     Active Substance: CARBOPLATIN
     Indication: Fallopian tube cancer
     Dosage: UNK
  11. CARBOPLATIN [Concomitant]
     Active Substance: CARBOPLATIN
     Indication: Ovarian cancer
     Dosage: UNK, CYCLE
     Route: 065
  12. GEMCITABINE [Concomitant]
     Active Substance: GEMCITABINE
     Dosage: UNK
  13. PREDNISONE [Concomitant]
     Active Substance: PREDNISONE
     Indication: Spondylitis
     Dosage: UNK
  14. PREDNISONE [Concomitant]
     Active Substance: PREDNISONE
     Dosage: 5 MILLIGRAM
     Route: 065

REACTIONS (6)
  - Anaphylactic reaction [Recovered/Resolved]
  - Type I hypersensitivity [Unknown]
  - Anaphylactic shock [Unknown]
  - Drug reaction with eosinophilia and systemic symptoms [Recovering/Resolving]
  - Drug hypersensitivity [Unknown]
  - Off label use [Unknown]
